FAERS Safety Report 4890738-4 (Version None)
Quarter: 2006Q1

REPORT INFORMATION
  Report Type: 
  Country: None (occurrence: None)
  Receive Date: 20060125
  Receipt Date: 20050107
  Transmission Date: 20060701
  Serious: Yes (Other)
  Sender: FDA-Public Use
  Company Number: US-BRISTOL-MYERS SQUIBB COMPANY-12818944

PATIENT
  Age: 26 Year
  Sex: Female

DRUGS (2)
  1. STADOL [Suspect]
     Route: 045
     Dates: start: 19980423, end: 19981101
  2. ULTRAM [Concomitant]

REACTIONS (1)
  - DEPENDENCE [None]
